FAERS Safety Report 21264329 (Version 1)
Quarter: 2022Q3

REPORT INFORMATION
  Report Type: Report from Study
  Country: CA (occurrence: CA)
  Receive Date: 20220829
  Receipt Date: 20220829
  Transmission Date: 20221027
  Serious: Yes (Hospitalization)
  Sender: FDA-Public Use
  Company Number: CA-BRISTOL-MYERS SQUIBB COMPANY-2022-093134

PATIENT
  Age: 74 Year
  Sex: Male
  Weight: 91.60 kg

DRUGS (3)
  1. LENALIDOMIDE [Suspect]
     Active Substance: LENALIDOMIDE
     Indication: Follicular lymphoma
     Dosage: DAILY ON DAYS 1 TO 21 OF CYCLES 1 TO 12
     Route: 048
     Dates: start: 20220524, end: 20220705
  2. RITUXIMAB [Suspect]
     Active Substance: RITUXIMAB
     Indication: Follicular lymphoma
     Dosage: ON DAYS 1, 8, 15 AND 22 OF CYCLE 1 AND ON DAY 1 OF CYCLES 2 TO 5)
     Route: 042
     Dates: start: 20220525, end: 20220705
  3. TAFASITAMAB [Suspect]
     Active Substance: TAFASITAMAB
     Indication: Follicular lymphoma
     Dosage: ON DAYS 1, 8, 15 AND 22 OF CYCLES 1 TO 3 AND ON DAYS 1 AND 15 (EVERY SECOND WEEK) OF CYCLES 4 TO 12)
     Route: 042
     Dates: start: 20220524, end: 20220705

REACTIONS (1)
  - COVID-19 [Recovered/Resolved]

NARRATIVE: CASE EVENT DATE: 20220705
